FAERS Safety Report 17961000 (Version 1)
Quarter: 2020Q2

REPORT INFORMATION
  Report Type: Spontaneous
  Country: US (occurrence: US)
  Receive Date: 20200629
  Receipt Date: 20200629
  Transmission Date: 20200714
  Serious: No
  Sender: FDA-Public Use
  Company Number: None

PATIENT
  Age: 72 Year
  Sex: Male

DRUGS (2)
  1. ROCURONIUM BROMIDE (ROCURONIUM BR 10MG/ML INJ, 5ML VIL) [Suspect]
     Active Substance: ROCURONIUM BROMIDE
     Indication: ANAESTHESIA
     Dosage: ?          OTHER ROUTE:IV?
     Dates: end: 20200623
  2. AMPICILLIN (AMPICILLIN NA 125MG/VIL INJ) [Suspect]
     Active Substance: AMPICILLIN SODIUM
     Indication: INFECTION PROPHYLAXIS
     Dosage: ?          OTHER ROUTE:IV?
     Dates: end: 20200623

REACTIONS (1)
  - Angioedema [None]

NARRATIVE: CASE EVENT DATE: 20200603
